FAERS Safety Report 16582190 (Version 1)
Quarter: 2019Q3

REPORT INFORMATION
  Report Type: Spontaneous
  Country: US (occurrence: US)
  Receive Date: 20190717
  Receipt Date: 20190717
  Transmission Date: 20191004
  Serious: Yes (Death, Hospitalization, Other)
  Sender: FDA-Public Use
  Company Number: US-ABBVIE-19K-163-2855390-00

PATIENT
  Age: 54 Year
  Sex: Female

DRUGS (17)
  1. ZOFRAN [Concomitant]
     Active Substance: ONDANSETRON HYDROCHLORIDE
     Indication: NAUSEA
     Dosage: 1-2 TABLETS EVERY 8 HOURS FOR UP TO 7 DAYS.
     Route: 048
     Dates: start: 20190225
  2. DULCOLAX NOS [Concomitant]
     Active Substance: BISACODYL OR DOCUSATE SODIUM
     Indication: PRODUCT USED FOR UNKNOWN INDICATION
     Dosage: PLACE 1 SUPPOSITORY (10 MG TOTAL) RECTALLY DAILY AS NEEDED. - RECTAL
     Route: 054
     Dates: start: 20190217
  3. PALBOCICLIB [Suspect]
     Active Substance: PALBOCICLIB
     Indication: BREAST CANCER METASTATIC
     Dosage: 75 MG DAILY -DAYS 21 OF 28 DAYS
     Route: 048
     Dates: start: 20190403, end: 2019
  4. DILAUDID [Concomitant]
     Active Substance: HYDROMORPHONE HYDROCHLORIDE
     Indication: PAIN
     Dosage: TAKE 1 TABLET (2 M9 TOTAL) BY MOUTH ONCE EVERY 4 (FOUR) HOURS
     Route: 048
     Dates: start: 20190217
  5. DURAGESIC [Concomitant]
     Active Substance: FENTANYL
     Indication: PRODUCT USED FOR UNKNOWN INDICATION
     Dosage: PLACE 1 PATCH ONTO THE SKIN EVERY THIRD DAY. DAILY AMOUNT: 1 PATCH -
     Route: 062
     Dates: start: 20190319
  6. REGLAN [Concomitant]
     Active Substance: METOCLOPRAMIDE HYDROCHLORIDE
     Indication: PRODUCT USED FOR UNKNOWN INDICATION
     Dosage: TAKE 5 M_G_ 3 TIMES A DAY
     Dates: start: 20190320
  7. KLOR-CON [Concomitant]
     Active Substance: POTASSIUM CHLORIDE
     Indication: PRODUCT USED FOR UNKNOWN INDICATION
     Dosage: TAKE 1 PACKET (20 MEQ T~TAL) BY MOUTH ONCE DAILY. - ORAL
     Route: 048
     Dates: start: 20190404
  8. VICODIN [Suspect]
     Active Substance: ACETAMINOPHEN\HYDROCODONE BITARTRATE
     Indication: PRODUCT USED FOR UNKNOWN INDICATION
     Route: 065
  9. ATIVAN [Concomitant]
     Active Substance: LORAZEPAM
     Indication: NAUSEA
  10. ZOFRAN [Concomitant]
     Active Substance: ONDANSETRON HYDROCHLORIDE
     Indication: VOMITING
  11. ARMOUR THYROID [Concomitant]
     Active Substance: THYROID, PORCINE
     Indication: PRODUCT USED FOR UNKNOWN INDICATION
     Dosage: TAKE 1 TABLET (90 MG TOTAL) BY MOUTH ONCE DAILY. - ORAL
     Route: 048
     Dates: start: 20190410
  12. PALBOCICLIB [Suspect]
     Active Substance: PALBOCICLIB
     Dosage: DOSE REDUCTION
     Route: 048
     Dates: start: 2019
  13. VITAMIN D3 [Concomitant]
     Active Substance: CHOLECALCIFEROL
     Indication: PRODUCT USED FOR UNKNOWN INDICATION
     Dosage: TAKE 5,000 UNITS BY MOUTH ONCE DAILY. - ORAL
     Route: 048
  14. MAXALT-MLT [Concomitant]
     Active Substance: RIZATRIPTAN BENZOATE
     Indication: MIGRAINE
     Dosage: TAKE 1-2 TABLETS PO PRN. NOT TO EXCEED 30 MG IN 24 HOURS
     Route: 048
     Dates: start: 20190503
  15. AMBIEN [Concomitant]
     Active Substance: ZOLPIDEM TARTRATE
     Indication: SLEEP DISORDER
     Dosage: 1-2 TABLETS (5-10 MG TOTAL) BY MOUTH ONCE NIGHTLY . DAILY AMOUNT: 10 MG- ORAL
     Route: 048
     Dates: start: 20190225
  16. FEMARA [Suspect]
     Active Substance: LETROZOLE
     Indication: BREAST CANCER METASTATIC
     Dosage: 2 MONTH, 2.5 MG WITH PALBOCICLIB
     Route: 048
     Dates: start: 20190204, end: 20190407
  17. ATIVAN [Concomitant]
     Active Substance: LORAZEPAM
     Indication: ANXIETY
     Dosage: TAKE 1 TABLET (1 MG TOTAL) BY MOUTH EVERY 6 (SIX) HOURS  DAILY 4 MG - ORAL
     Route: 048
     Dates: start: 20190327

REACTIONS (12)
  - Insomnia [Unknown]
  - Breast cancer metastatic [Fatal]
  - Thrombocytopenia [Unknown]
  - Vomiting [Unknown]
  - Neutropenia [Recovered/Resolved]
  - Dehydration [Unknown]
  - Leukopenia [Recovered/Resolved]
  - Hypokalaemia [Unknown]
  - Drug eruption [Unknown]
  - Nausea [Unknown]
  - Pancytopenia [Unknown]
  - Hyponatraemia [Unknown]

NARRATIVE: CASE EVENT DATE: 20190329
